FAERS Safety Report 16004261 (Version 1)
Quarter: 2019Q1

REPORT INFORMATION
  Report Type: Spontaneous
  Country: US (occurrence: US)
  Receive Date: 20190225
  Receipt Date: 20190225
  Transmission Date: 20190418
  Serious: Yes (Disabling)
  Sender: FDA-Public Use
  Company Number: None

PATIENT
  Age: 27 Year
  Sex: Female
  Weight: 95.4 kg

DRUGS (6)
  1. XANAX [Concomitant]
     Active Substance: ALPRAZOLAM
  2. VITAMIN B [Concomitant]
     Active Substance: VITAMIN B
  3. VITAMIN A [Concomitant]
     Active Substance: VITAMIN A
  4. VITAMIN K [Concomitant]
     Active Substance: PHYTONADIONE
  5. CALCIUM [Concomitant]
     Active Substance: CALCIUM
  6. ADDERALL [Suspect]
     Active Substance: AMPHETAMINE ASPARTATE\AMPHETAMINE SULFATE\DEXTROAMPHETAMINE SACCHARATE\DEXTROAMPHETAMINE SULFATE
     Indication: ATTENTION DEFICIT/HYPERACTIVITY DISORDER
     Dosage: ?          QUANTITY:1 TABLET(S);?
     Route: 048
     Dates: start: 20190214, end: 20190221

REACTIONS (7)
  - Diarrhoea [None]
  - Blood pressure increased [None]
  - Constipation [None]
  - Disturbance in attention [None]
  - Dehydration [None]
  - Headache [None]
  - Product complaint [None]

NARRATIVE: CASE EVENT DATE: 20190214
